FAERS Safety Report 12919465 (Version 2)
Quarter: 2016Q4

REPORT INFORMATION
  Report Type: Spontaneous
  Country: US (occurrence: US)
  Receive Date: 20161108
  Receipt Date: 20161201
  Transmission Date: 20170207
  Serious: Yes (Life-Threatening, Hospitalization, Other)
  Sender: FDA-Public Use
  Company Number: US-JNJFOC-20161100745

PATIENT
  Age: 46 Year
  Sex: Male

DRUGS (2)
  1. ACETAMINOPHEN. [Suspect]
     Active Substance: ACETAMINOPHEN
     Indication: PRODUCT USED FOR UNKNOWN INDICATION
     Dosage: MORE THAN 6-7 G/DAY FOR ABOUT A WEEK
     Route: 065
  2. ACETAMINOPHEN. [Suspect]
     Active Substance: ACETAMINOPHEN
     Route: 065

REACTIONS (8)
  - Glucose-6-phosphate dehydrogenase deficiency [Unknown]
  - International normalised ratio increased [Unknown]
  - Toxicity to various agents [Unknown]
  - Hypoxia [Unknown]
  - Haemolytic anaemia [Unknown]
  - Overdose [Unknown]
  - Hepatotoxicity [Unknown]
  - Transaminases increased [Unknown]
